FAERS Safety Report 7035651-1 (Version None)
Quarter: 2010Q4

REPORT INFORMATION
  Report Type: 
  Country: None (occurrence: None)
  Receive Date: 20101008
  Receipt Date: 20100923
  Transmission Date: 20110411
  Serious: Yes (Other)
  Sender: FDA-Public Use
  Company Number: CA-MERCK-1009USA04926

PATIENT
  Age: 72 Year
  Sex: Male
  Weight: 73 kg

DRUGS (14)
  1. PRIMAXIN [Suspect]
     Route: 042
  2. ACETAMINOPHEN [Concomitant]
     Route: 065
  3. DIMENHYDRINATE [Concomitant]
     Route: 042
  4. FRAGMIN [Concomitant]
     Route: 065
  5. GENTAMICIN [Concomitant]
     Route: 042
  6. IBUPROFEN [Concomitant]
     Route: 048
  7. LACTULOSE [Concomitant]
     Route: 065
  8. LORAZEPAM [Concomitant]
     Route: 065
  9. NITROGLYCERIN [Concomitant]
     Route: 065
  10. OXYCONTIN [Concomitant]
     Route: 065
  11. OXYCONTIN [Concomitant]
     Route: 065
  12. SENNOSIDES [Concomitant]
     Route: 065
  13. TRAMADOL HCL [Concomitant]
     Route: 065
  14. ZOPICLONE [Concomitant]
     Route: 065

REACTIONS (1)
  - APHASIA [None]
